FAERS Safety Report 24348346 (Version 1)
Quarter: 2024Q3

REPORT INFORMATION
  Report Type: Spontaneous
  Country: CN (occurrence: CN)
  Receive Date: 20240923
  Receipt Date: 20240923
  Transmission Date: 20241016
  Serious: Yes (Hospitalization)
  Sender: CHEPLAPHARM
  Company Number: CN-CHEPLA-2024012006

PATIENT
  Age: 34 Year
  Sex: Female

DRUGS (6)
  1. OLANZAPINE [Suspect]
     Active Substance: OLANZAPINE
     Indication: Depression
     Dosage: EXTENDED PERIOD
     Route: 048
  2. OLANZAPINE [Suspect]
     Active Substance: OLANZAPINE
     Indication: Mania
     Dosage: EXTENDED PERIOD
     Route: 048
  3. LORAZEPAM [Suspect]
     Active Substance: LORAZEPAM
     Indication: Mania
     Dosage: EXTENDED PERIOD
     Route: 048
  4. LORAZEPAM [Suspect]
     Active Substance: LORAZEPAM
     Indication: Depression
     Dosage: EXTENDED PERIOD
     Route: 048
  5. LICORICE [Suspect]
     Active Substance: LICORICE
     Indication: Mania
     Dosage: LARGE DOSE OF 400 COMPOUND LICORICE TABLETS (FOUR BOTTLES) WITHIN ONE WEEK
  6. LICORICE [Suspect]
     Active Substance: LICORICE
     Indication: Depression
     Dosage: LARGE DOSE OF 400 COMPOUND LICORICE TABLETS (FOUR BOTTLES) WITHIN ONE WEEK

REACTIONS (8)
  - Torsade de pointes [Recovered/Resolved]
  - Ventricular fibrillation [Recovered/Resolved]
  - Hypertension [Recovered/Resolved]
  - Metabolic alkalosis [Recovered/Resolved]
  - Mental disorder [Recovered/Resolved]
  - Hypokalaemia [Recovered/Resolved]
  - Mitral valve incompetence [Recovered/Resolved]
  - Left ventricular dysfunction [Recovered/Resolved]
